FAERS Safety Report 12556316 (Version 6)
Quarter: 2016Q4

REPORT INFORMATION
  Report Type: Report from Study
  Country: US (occurrence: US)
  Receive Date: 20160714
  Receipt Date: 20161128
  Transmission Date: 20170207
  Serious: Yes (Death, Hospitalization, Other)
  Sender: FDA-Public Use
  Company Number: US-009507513-1607USA003860

PATIENT
  Age: 81 Year
  Sex: Female
  Weight: 59.7 kg

DRUGS (1)
  1. KEYTRUDA [Suspect]
     Active Substance: PEMBROLIZUMAB
     Indication: OVARIAN CANCER
     Dosage: 120 MG, Q21 DAYS X 12 MONTHS
     Route: 042
     Dates: start: 20160407, end: 2016

REACTIONS (4)
  - Malignant neoplasm progression [Fatal]
  - Product use issue [Unknown]
  - Dyspnoea [Unknown]
  - Pneumonitis [Fatal]

NARRATIVE: CASE EVENT DATE: 2016
